FAERS Safety Report 11383249 (Version 1)
Quarter: 2015Q3

REPORT INFORMATION
  Report Type: Report from Study
  Country: KR (occurrence: KR)
  Receive Date: 20150814
  Receipt Date: 20150814
  Transmission Date: 20151125
  Serious: Yes (Other)
  Sender: FDA-Public Use
  Company Number: KR-BRISTOL-MYERS SQUIBB COMPANY-BMS-2015-052576

PATIENT
  Sex: Male

DRUGS (1)
  1. ENTECAVIR. [Suspect]
     Active Substance: ENTECAVIR
     Indication: CHRONIC HEPATITIS B
     Dosage: 0.5 MG, UNK
     Route: 065
     Dates: start: 2010

REACTIONS (4)
  - Hepatic cancer [Unknown]
  - Surgery [Unknown]
  - Liver transplant [Unknown]
  - Hepatic cancer recurrent [Unknown]

NARRATIVE: CASE EVENT DATE: 2012
